FAERS Safety Report 12202839 (Version 2)
Quarter: 2016Q2

REPORT INFORMATION
  Report Type: Spontaneous
  Country: US (occurrence: US)
  Receive Date: 20160322
  Receipt Date: 20160429
  Transmission Date: 20160815
  Serious: No
  Sender: FDA-Public Use
  Company Number: US-ALLERGAN-1651203US

PATIENT
  Age: 69 Year
  Sex: Female

DRUGS (3)
  1. MURO 128 [Concomitant]
     Active Substance: SODIUM CHLORIDE
     Indication: PAIN
     Dosage: UNK UNK, QHS
     Route: 047
     Dates: start: 1996
  2. MURO 128 [Concomitant]
     Active Substance: SODIUM CHLORIDE
     Indication: CORNEAL ABRASION
  3. RESTASIS [Suspect]
     Active Substance: CYCLOSPORINE
     Indication: DRY EYE
     Dosage: 2 UNITS, BID
     Route: 047
     Dates: start: 2011

REACTIONS (1)
  - Cataract [Not Recovered/Not Resolved]
